FAERS Safety Report 4692806-9 (Version None)
Quarter: 2005Q2

REPORT INFORMATION
  Report Type: 
  Country: None (occurrence: None)
  Receive Date: 20050617
  Receipt Date: 20050606
  Transmission Date: 20051028
  Serious: Yes (Other)
  Sender: FDA-Public Use
  Company Number: 2005GB01116

PATIENT
  Age: 68 Year
  Sex: Female
  Weight: 78 kg

DRUGS (8)
  1. ARIMIDEX [Suspect]
     Indication: BREAST CANCER
     Route: 048
     Dates: start: 20041201
  2. HUMULIN S [Concomitant]
     Indication: DIABETES MELLITUS INSULIN-DEPENDENT
     Dates: start: 20000101, end: 20050503
  3. HUMULIN L [Concomitant]
     Indication: DIABETES MELLITUS INSULIN-DEPENDENT
     Dates: start: 20000101, end: 20050503
  4. CARDURA [Concomitant]
     Indication: HYPERTENSION
     Dates: start: 20040122
  5. DIOVAN [Concomitant]
     Indication: HYPERTENSION
     Dates: start: 20010514
  6. BISOPROLOL FUMARATE [Concomitant]
     Indication: MYOCARDIAL ISCHAEMIA
     Dates: start: 20021031
  7. LIPITOR [Concomitant]
     Indication: HYPERLIPIDAEMIA
     Dates: start: 20001019
  8. ASPIRIN [Concomitant]
     Indication: MYOCARDIAL ISCHAEMIA
     Dates: start: 20000101

REACTIONS (1)
  - DIABETES MELLITUS INADEQUATE CONTROL [None]
